FAERS Safety Report 16168056 (Version 6)
Quarter: 2021Q4

REPORT INFORMATION
  Report Type: Spontaneous
  Country: US (occurrence: US)
  Receive Date: 20190408
  Receipt Date: 20211122
  Transmission Date: 20220303
  Serious: Yes (Death, Other)
  Sender: FDA-Public Use
  Company Number: US-PFIZER INC-2019145245

PATIENT
  Age: 82 Year
  Sex: Male

DRUGS (1)
  1. XELJANZ [Suspect]
     Active Substance: TOFACITINIB CITRATE
     Indication: Rheumatoid arthritis
     Dosage: 5 MG

REACTIONS (3)
  - Death [Fatal]
  - Transient ischaemic attack [Unknown]
  - Fall [Unknown]

NARRATIVE: CASE EVENT DATE: 20210101
